FAERS Safety Report 7609970-1 (Version None)
Quarter: 2011Q3

REPORT INFORMATION
  Report Type: 
  Country: None (occurrence: None)
  Receive Date: 20110714
  Receipt Date: 20110706
  Transmission Date: 20111222
  Serious: Yes (Disabling)
  Sender: FDA-Public Use
  Company Number: US-MERCK-1101USA02310

PATIENT
  Age: 69 Year
  Sex: Male
  Weight: 83 kg

DRUGS (7)
  1. SINEMET [Suspect]
     Indication: PARKINSON'S DISEASE
     Route: 048
     Dates: start: 20050101
  2. SINEMET [Suspect]
     Route: 048
  3. SINEMET [Suspect]
     Dosage: TOOK 2 1/2 TABLETS TWO TIMES,2 TABLETS AT OTHER TIMES
     Route: 048
     Dates: start: 20110101
  4. FINASTERIDE [Concomitant]
     Route: 048
  5. PRILOSEC [Concomitant]
     Route: 048
  6. SINEMET [Suspect]
     Route: 048
  7. SANCTURA [Concomitant]
     Route: 065

REACTIONS (7)
  - SOMNOLENCE [None]
  - ABNORMAL BEHAVIOUR [None]
  - DYSARTHRIA [None]
  - MOVEMENT DISORDER [None]
  - WRONG TECHNIQUE IN DRUG USAGE PROCESS [None]
  - OVERDOSE [None]
  - TOXICITY TO VARIOUS AGENTS [None]
